FAERS Safety Report 10211136 (Version 1)
Quarter: 2014Q2

REPORT INFORMATION
  Report Type: Spontaneous
  Country: US (occurrence: None)
  Receive Date: 20140530
  Receipt Date: 20140530
  Transmission Date: 20141212
  Serious: No
  Sender: FDA-Public Use
  Company Number: None

PATIENT
  Age: 81 Year
  Sex: Female
  Weight: 72.12 kg

DRUGS (16)
  1. METHYLPREDNISOLONE [Suspect]
     Indication: ANTIINFLAMMATORY THERAPY
     Route: 048
     Dates: start: 20140513
  2. NEXIUM 40 MG [Concomitant]
  3. TRAMADOL 50 MG [Concomitant]
  4. PROAIR HFA [Concomitant]
  5. D3 [Concomitant]
  6. B12 [Concomitant]
  7. CO Q10 50 MG [Concomitant]
  8. GLCO + CHONDROTIN [Concomitant]
  9. RESVERATROL 100 + EGCG [Concomitant]
  10. CHOLESTACARE [Concomitant]
  11. OMEGA - 3 [Concomitant]
  12. PHOSPHATIDYZCHOLINE [Concomitant]
  13. CALCIUM 500 MG [Concomitant]
  14. D3 400 IU [Concomitant]
  15. BORON 1000 MC [Concomitant]
  16. VIT C 30 MG [Concomitant]

REACTIONS (8)
  - Face oedema [None]
  - Feeling hot [None]
  - Erythema [None]
  - Erythema of eyelid [None]
  - Oedema peripheral [None]
  - Erythema [None]
  - Muscle spasms [None]
  - Respiratory disorder [None]
